FAERS Safety Report 15356554 (Version 1)
Quarter: 2018Q3

REPORT INFORMATION
  Report Type: Spontaneous
  Country: US (occurrence: US)
  Receive Date: 20180830
  Receipt Date: 20180830
  Transmission Date: 20181010
  Serious: No
  Sender: FDA-Public Use
  Company Number: None

PATIENT
  Age: 36 Year
  Sex: Female

DRUGS (3)
  1. BENZNIDAZOLE. [Suspect]
     Active Substance: BENZNIDAZOLE
     Indication: AMERICAN TRYPANOSOMIASIS
     Route: 048
  2. METFORMIN [Concomitant]
     Active Substance: METFORMIN HYDROCHLORIDE
  3. ATORVASTATIN [Concomitant]
     Active Substance: ATORVASTATIN

REACTIONS (4)
  - Vomiting [None]
  - Drug intolerance [None]
  - Headache [None]
  - Skin exfoliation [None]
